FAERS Safety Report 9098297 (Version 2)
Quarter: 2013Q1

REPORT INFORMATION
  Report Type: Spontaneous
  Country: JP (occurrence: JP)
  Receive Date: 20130213
  Receipt Date: 20130221
  Transmission Date: 20140127
  Serious: Yes (Death, Hospitalization)
  Sender: FDA-Public Use
  Company Number: JP-EISAI INC-E2020-11950-SPO-JP

PATIENT
  Age: 91 Year
  Sex: Female

DRUGS (7)
  1. ARICEPT [Suspect]
     Indication: DEMENTIA ALZHEIMER^S TYPE
     Route: 048
     Dates: start: 20080717, end: 20080730
  2. ARICEPT [Suspect]
     Route: 048
     Dates: start: 20080731, end: 20101119
  3. ARICEPT [Suspect]
     Route: 048
     Dates: start: 20101203, end: 20101208
  4. ARICEPT [Suspect]
     Route: 048
     Dates: start: 20101209
  5. MYSLEE [Concomitant]
     Route: 048
     Dates: start: 20101112
  6. LULLAN [Concomitant]
     Route: 048
     Dates: start: 20101112
  7. ZYPREXA [Concomitant]
     Route: 048
     Dates: start: 20101112

REACTIONS (2)
  - Sudden death [Fatal]
  - Syncope [Recovered/Resolved]
